FAERS Safety Report 17253138 (Version 1)
Quarter: 2019Q4

REPORT INFORMATION
  Report Type: Spontaneous
  Country: US (occurrence: US)
  Receive Date: 20191216
  Receipt Date: 20191216
  Transmission Date: 20200122
  Serious: Yes (Hospitalization)
  Sender: FDA-Public Use
  Company Number: None

PATIENT
  Age: 51 Year
  Sex: Female

DRUGS (15)
  1. REPATHA [Suspect]
     Active Substance: EVOLOCUMAB
     Indication: ACQUIRED IMMUNODEFICIENCY SYNDROME
     Dosage: ?          OTHER FREQUENCY:1 PEN/2 WEEKS;?
     Route: 058
     Dates: start: 20191001
  2. REPATHA [Suspect]
     Active Substance: EVOLOCUMAB
     Indication: TYPE 2 DIABETES MELLITUS
  3. LANTUS SOLOS INJ [Concomitant]
  4. DICYCLOMINE [Concomitant]
     Active Substance: DICYCLOMINE HYDROCHLORIDE
  5. FUROSEMIDE. [Concomitant]
     Active Substance: FUROSEMIDE
  6. EZETIMIBE. [Concomitant]
     Active Substance: EZETIMIBE
  7. HYDRALAZINE [Concomitant]
     Active Substance: HYDRALAZINE HYDROCHLORIDE
  8. HYDROCO/APAP [Concomitant]
     Active Substance: ACETAMINOPHEN\HYDROCODONE
  9. REPATHA [Suspect]
     Active Substance: EVOLOCUMAB
     Indication: HIV INFECTION
     Dosage: ?          OTHER FREQUENCY:1 PEN/2 WEEKS;?
     Route: 058
     Dates: start: 20191001
  10. FUROSEDIDE [Concomitant]
  11. SPIRON/HCTZ [Concomitant]
  12. PROMETHAZINE [Concomitant]
     Active Substance: PROMETHAZINE HYDROCHLORIDE
  13. PANTOPRAZOLE [Concomitant]
     Active Substance: PANTOPRAZOLE
  14. CLOPIDOGREL [Concomitant]
     Active Substance: CLOPIDOGREL BISULFATE
  15. BASAGLAR INJ [Concomitant]

REACTIONS (2)
  - Hospitalisation [None]
  - Therapy cessation [None]
